FAERS Safety Report 9093433 (Version 1)
Quarter: 2013Q1

REPORT INFORMATION
  Report Type: Report from Study
  Country: US (occurrence: US)
  Receive Date: 20130131
  Receipt Date: 20130131
  Transmission Date: 20140127
  Serious: No
  Sender: FDA-Public Use
  Company Number: US-ABBOTT-12P-163-1002883-00

PATIENT
  Age: 55 Year
  Sex: Female

DRUGS (9)
  1. HUMIRA [Suspect]
     Indication: ANKYLOSING SPONDYLITIS
     Dosage: INITIAL DOSE
     Dates: start: 20121017
  2. COREG [Concomitant]
     Indication: BLOOD PRESSURE
  3. HYZAAR [Concomitant]
     Indication: BLOOD PRESSURE
  4. BABY ASPIRIN [Concomitant]
     Indication: CARDIOVASCULAR EVENT PROPHYLAXIS
  5. FISH OIL [Concomitant]
     Indication: VITAMIN SUPPLEMENTATION
  6. CALCIUM [Concomitant]
     Indication: MINERAL SUPPLEMENTATION
  7. CENTRUM OVER 50 VITAMIN [Concomitant]
     Indication: VITAMIN SUPPLEMENTATION
  8. VITAMIN D-2 [Concomitant]
     Indication: VITAMIN SUPPLEMENTATION
  9. VITAMIN D-2 [Concomitant]
     Indication: VITAMIN D DECREASED

REACTIONS (10)
  - Sinus disorder [Recovering/Resolving]
  - Sinus operation [Recovering/Resolving]
  - Feeling hot [Recovering/Resolving]
  - Lacrimation increased [Recovering/Resolving]
  - Dysphonia [Recovering/Resolving]
  - Ear discomfort [Recovering/Resolving]
  - Facial pain [Recovering/Resolving]
  - Headache [Recovering/Resolving]
  - Ear pain [Recovering/Resolving]
  - Eye pain [Recovering/Resolving]
